FAERS Safety Report 6652342-7 (Version None)
Quarter: 2010Q1

REPORT INFORMATION
  Report Type: 
  Country: None (occurrence: None)
  Receive Date: 20100325
  Receipt Date: 20100316
  Transmission Date: 20100710
  Serious: Yes (Hospitalization)
  Sender: FDA-Public Use
  Company Number: JP-ROCHE-670914

PATIENT
  Sex: Female

DRUGS (16)
  1. TOCILIZUMAB [Suspect]
     Indication: RHEUMATOID ARTHRITIS
     Route: 041
     Dates: start: 20090304, end: 20090304
  2. TOCILIZUMAB [Suspect]
     Route: 041
     Dates: start: 20090401, end: 20090401
  3. TOCILIZUMAB [Suspect]
     Route: 041
     Dates: start: 20090501, end: 20090501
  4. TOCILIZUMAB [Suspect]
     Route: 041
     Dates: start: 20090603, end: 20090603
  5. TOCILIZUMAB [Suspect]
     Route: 041
     Dates: start: 20090701, end: 20090701
  6. TOCILIZUMAB [Suspect]
     Route: 041
     Dates: start: 20090729, end: 20090729
  7. TOCILIZUMAB [Suspect]
     Route: 041
     Dates: start: 20090826, end: 20090826
  8. TOCILIZUMAB [Suspect]
     Route: 041
     Dates: start: 20090930, end: 20090930
  9. TOCILIZUMAB [Suspect]
     Route: 041
     Dates: start: 20091028, end: 20091028
  10. TOCILIZUMAB [Suspect]
     Route: 041
     Dates: start: 20091216, end: 20091216
  11. RIMATIL [Concomitant]
     Dosage: NOTE: ONLY ON DAYS OF DIALYSIS.
     Route: 048
     Dates: end: 20090331
  12. AZULFIDINE [Concomitant]
     Dosage: DRUG: AZULFIDINE-EN(SALAZOSULFAPYRIDINE).
     Route: 048
     Dates: start: 20071027
  13. ISCOTIN [Concomitant]
     Dosage: NOTE: ONLY ON DAYS OF DIALYSIS.
     Route: 048
     Dates: start: 20090106, end: 20091027
  14. LANSOPRAZOLE [Concomitant]
     Route: 048
     Dates: start: 20100303
  15. METHYCOBAL [Concomitant]
     Route: 048
     Dates: start: 20100303
  16. BAKTAR [Concomitant]
     Dosage: NOTE: ONLY ON DAYS OF DIALYSIS.
     Route: 048
     Dates: start: 20100303

REACTIONS (6)
  - ABSCESS [None]
  - ABSCESS INTESTINAL [None]
  - EOSINOPHIL COUNT INCREASED [None]
  - HYPERTRIGLYCERIDAEMIA [None]
  - PERITONITIS [None]
  - SEPSIS [None]
